FAERS Safety Report 9868554 (Version 1)
Quarter: 2014Q1

REPORT INFORMATION
  Report Type: Spontaneous
  Country: US (occurrence: US)
  Receive Date: 20140204
  Receipt Date: 20140204
  Transmission Date: 20141002
  Serious: Yes (Hospitalization, Disabling)
  Sender: FDA-Public Use
  Company Number: US-MYLANLABS-2014S1001602

PATIENT
  Age: 65 Year
  Sex: Male

DRUGS (1)
  1. LITHIUM [Suspect]
     Indication: BIPOLAR I DISORDER
     Route: 065

REACTIONS (3)
  - Toxicity to various agents [Recovering/Resolving]
  - Condition aggravated [Recovering/Resolving]
  - Multiple system atrophy [Recovering/Resolving]
